FAERS Safety Report 16104669 (Version 1)
Quarter: 2019Q1

REPORT INFORMATION
  Report Type: Spontaneous
  Country: RS (occurrence: DE)
  Receive Date: 20190322
  Receipt Date: 20190322
  Transmission Date: 20190418
  Serious: Yes (Death, Other)
  Sender: FDA-Public Use
  Company Number: DE-RECORDATI RARE DISEASES INC.-DE-R13005-19-00068

PATIENT
  Age: 37 Year
  Sex: Female

DRUGS (16)
  1. CYCLOPHOSPHAMIDE. [Suspect]
     Active Substance: CYCLOPHOSPHAMIDE
     Indication: METASTATIC CHORIOCARCINOMA
     Route: 065
     Dates: start: 201012
  2. CYCLOPHOSPHAMIDE. [Suspect]
     Active Substance: CYCLOPHOSPHAMIDE
     Route: 065
     Dates: start: 201105
  3. CYCLOPHOSPHAMIDE. [Suspect]
     Active Substance: CYCLOPHOSPHAMIDE
     Route: 065
  4. VINCRISTINE [Suspect]
     Active Substance: VINCRISTINE
     Indication: METASTATIC CHORIOCARCINOMA
     Route: 065
     Dates: start: 201012
  5. CARBAMAZEPINE. [Concomitant]
     Active Substance: CARBAMAZEPINE
     Indication: PRODUCT USED FOR UNKNOWN INDICATION
     Route: 065
  6. DACTINOMYCIN [Suspect]
     Active Substance: DACTINOMYCIN
     Route: 065
  7. VINCRISTINE [Suspect]
     Active Substance: VINCRISTINE
     Route: 065
     Dates: start: 201105
  8. METHOTREXATE. [Suspect]
     Active Substance: METHOTREXATE
     Route: 065
  9. DACTINOMYCIN [Suspect]
     Active Substance: DACTINOMYCIN
     Route: 065
     Dates: start: 201012
  10. ETOPOSIDE. [Suspect]
     Active Substance: ETOPOSIDE
     Route: 065
     Dates: start: 201105
  11. ETOPOSIDE. [Suspect]
     Active Substance: ETOPOSIDE
     Route: 065
  12. METHOTREXATE. [Suspect]
     Active Substance: METHOTREXATE
     Route: 065
     Dates: start: 201105
  13. ETOPOSIDE. [Suspect]
     Active Substance: ETOPOSIDE
     Indication: METASTATIC CHORIOCARCINOMA
     Route: 065
     Dates: start: 201012
  14. VINCRISTINE [Suspect]
     Active Substance: VINCRISTINE
     Route: 065
  15. METHOTREXATE. [Suspect]
     Active Substance: METHOTREXATE
     Indication: METASTATIC CHORIOCARCINOMA
     Route: 065
     Dates: start: 201012
  16. DACTINOMYCIN [Suspect]
     Active Substance: DACTINOMYCIN
     Route: 065
     Dates: start: 201105

REACTIONS (7)
  - Infection [Fatal]
  - Pancytopenia [Unknown]
  - Choriocarcinoma [Unknown]
  - Disease recurrence [Unknown]
  - Generalised tonic-clonic seizure [Recovering/Resolving]
  - Hepatic failure [Fatal]
  - Tumour necrosis [Fatal]
